FAERS Safety Report 16029120 (Version 1)
Quarter: 2019Q1

REPORT INFORMATION
  Report Type: Spontaneous
  Country: FR (occurrence: FR)
  Receive Date: 20190304
  Receipt Date: 20190304
  Transmission Date: 20190418
  Serious: Yes (Hospitalization)
  Sender: FDA-Public Use
  Company Number: FR-TEVA-2019-FR-1017875

PATIENT
  Age: 48 Year
  Sex: Female
  Weight: 116 kg

DRUGS (2)
  1. VANCOMYCINE [Suspect]
     Active Substance: VANCOMYCIN
     Indication: SEPSIS
     Route: 042
     Dates: start: 201708
  2. GENTAMICINE [Suspect]
     Active Substance: GENTAMICIN
     Indication: SEPSIS
     Route: 042
     Dates: start: 201708

REACTIONS (2)
  - Acute kidney injury [Recovered/Resolved]
  - Renal tubular necrosis [Recovered/Resolved]

NARRATIVE: CASE EVENT DATE: 20170823
